FAERS Safety Report 22006718 (Version 1)
Quarter: 2023Q1

REPORT INFORMATION
  Report Type: Other
  Country: US (occurrence: US)
  Receive Date: 20230217
  Receipt Date: 20230217
  Transmission Date: 20230418
  Serious: Yes (Hospitalization, Other)
  Sender: FDA-Public Use
  Company Number: US-HLS-202300064

PATIENT
  Age: 41 Year
  Sex: Female

DRUGS (4)
  1. CLOZAPINE [Suspect]
     Active Substance: CLOZAPINE
     Indication: Completed suicide
     Dosage: CLOZAPINE 500 MG IN DIVIDED DOSES, 100 MG ORAL IN THE MORNING AND 400 MG ORAL AT BEDTIME;
     Route: 048
  2. CLOZAPINE [Suspect]
     Active Substance: CLOZAPINE
     Indication: Completed suicide
     Dosage: TITRATION WAS RESTARTED, PLACED ON 100 MG ORAL TWICE/D
     Route: 048
  3. DILTIAZEM [Concomitant]
     Active Substance: DILTIAZEM
     Indication: Hypertension
     Dosage: CONTROLLED DELIVERY 180 MG TWICE/DAY
     Route: 065
  4. FLUOXETINE [Concomitant]
     Active Substance: FLUOXETINE HYDROCHLORIDE
     Indication: Product used for unknown indication
     Route: 065

REACTIONS (6)
  - Toxicity to various agents [Recovering/Resolving]
  - Drug interaction [Recovered/Resolved]
  - Off label use [Not Recovered/Not Resolved]
  - Ventricular extrasystoles [Recovered/Resolved]
  - Electrocardiogram QT shortened [Recovered/Resolved]
  - Tobacco interaction [Recovered/Resolved]
